FAERS Safety Report 17734469 (Version 1)
Quarter: 2020Q2

REPORT INFORMATION
  Report Type: Spontaneous
  Country: US (occurrence: US)
  Receive Date: 20200430
  Receipt Date: 20200430
  Transmission Date: 20200714
  Serious: No
  Sender: FDA-Public Use
  Company Number: None

PATIENT
  Age: 71 Year
  Sex: Male
  Weight: 86 kg

DRUGS (1)
  1. DIGOXIN (DIGOXIN 0.1MG/ML INJ) [Suspect]
     Active Substance: DIGOXIN
     Indication: ATRIAL FIBRILLATION
     Route: 042
     Dates: start: 20191116, end: 20191117

REACTIONS (1)
  - Cardioactive drug level increased [None]

NARRATIVE: CASE EVENT DATE: 20191118
